FAERS Safety Report 9310998 (Version 2)
Quarter: 2013Q2

REPORT INFORMATION
  Report Type: Spontaneous
  Country: JP (occurrence: JP)
  Receive Date: 20130528
  Receipt Date: 20130604
  Transmission Date: 20140414
  Serious: Yes (Hospitalization, Other)
  Sender: FDA-Public Use
  Company Number: 2013SP004275

PATIENT
  Sex: Female
  Weight: 2.18 kg

DRUGS (12)
  1. HALOPERIDOL DECANOATE [Suspect]
     Indication: PRODUCT USED FOR UNKNOWN INDICATION
     Route: 064
  2. RISPERIDONE [Suspect]
     Indication: PRODUCT USED FOR UNKNOWN INDICATION
     Route: 064
  3. OLANZAPINE [Suspect]
     Indication: PRODUCT USED FOR UNKNOWN INDICATION
     Route: 064
  4. QUETIAPINE [Suspect]
     Indication: PRODUCT USED FOR UNKNOWN INDICATION
     Route: 064
  5. CHLORPROMAZINE HYDROCHLORIDE [Suspect]
     Indication: PRODUCT USED FOR UNKNOWN INDICATION
     Route: 064
  6. TRIAZOLAM [Concomitant]
  7. BROMAZEPAM [Concomitant]
  8. FLUNITRAZEPAM [Concomitant]
  9. VALPROATE SODIUM [Concomitant]
  10. CARBAMAZEPINE [Concomitant]
  11. BIPERIDEN [Concomitant]
  12. CLOMIPRAMINE [Concomitant]

REACTIONS (14)
  - Foetal exposure during pregnancy [Unknown]
  - Drug withdrawal syndrome neonatal [Recovered/Resolved with Sequelae]
  - Small for dates baby [Unknown]
  - Convulsion neonatal [Recovered/Resolved with Sequelae]
  - Developmental delay [Unknown]
  - Nervous system disorder [Recovered/Resolved with Sequelae]
  - Tremor [Recovered/Resolved with Sequelae]
  - Hyperprolactinaemia [Recovered/Resolved with Sequelae]
  - Hepatic function abnormal [Unknown]
  - Blood creatine phosphokinase increased [Unknown]
  - Respiratory acidosis [Unknown]
  - Cyanosis neonatal [Unknown]
  - Apnoeic attack [Recovered/Resolved]
  - Diarrhoea [Unknown]
